FAERS Safety Report 21692711 (Version 1)
Quarter: 2022Q4

REPORT INFORMATION
  Report Type: Spontaneous
  Country: GB (occurrence: GB)
  Receive Date: 20221207
  Receipt Date: 20221207
  Transmission Date: 20230112
  Serious: No
  Sender: FDA-Public Use
  Company Number: None

PATIENT
  Age: 40 Year
  Sex: Female
  Weight: 59.8 kg

DRUGS (36)
  1. TOLVAPTAN [Suspect]
     Active Substance: TOLVAPTAN
     Indication: Congenital cystic kidney disease
     Dosage: 15 MILLIGRAM,  TABLET (UNCOATED)
     Route: 048
     Dates: start: 20180511
  2. TOLVAPTAN [Suspect]
     Active Substance: TOLVAPTAN
     Dosage: 45 MILLIGRAM, TABLET (UNCOATED)
     Route: 048
     Dates: start: 20180511
  3. TOLVAPTAN [Suspect]
     Active Substance: TOLVAPTAN
     Dosage: 30 MILLIGRAM, TABLET (UNCOATED)
     Route: 048
     Dates: start: 20180618
  4. TOLVAPTAN [Suspect]
     Active Substance: TOLVAPTAN
     Dosage: 60 MILLIGRAM, TABLET (UNCOATED)
     Route: 048
     Dates: start: 20180618
  5. TOLVAPTAN [Suspect]
     Active Substance: TOLVAPTAN
     Dosage: 30 MILLIGRAM, QD TABLET (UNCOATED), TABLET (UNCOATED, ORAL)
     Route: 048
     Dates: start: 20180717
  6. TOLVAPTAN [Suspect]
     Active Substance: TOLVAPTAN
     Dosage: 90 MILLIGRAM, TABLET (UNCOATED)
     Route: 048
     Dates: start: 20180717
  7. TOLVAPTAN [Suspect]
     Active Substance: TOLVAPTAN
     Dosage: 30 MILLIGRAM, TABLET (UNCOATED
     Route: 048
     Dates: start: 20181010
  8. TOLVAPTAN [Suspect]
     Active Substance: TOLVAPTAN
     Dosage: 60 MILLIGRAM, TABLET (UNCOATED)
     Route: 048
     Dates: start: 20181010
  9. TOLVAPTAN [Suspect]
     Active Substance: TOLVAPTAN
     Dosage: 15 MILLIGRAM (TABLET, UNCOATED)
     Route: 048
     Dates: start: 20181018
  10. TOLVAPTAN [Suspect]
     Active Substance: TOLVAPTAN
     Dosage: 45 MILLIGRAM, TABLET (UNCOATED)
     Route: 048
     Dates: start: 20181018
  11. TOLVAPTAN [Suspect]
     Active Substance: TOLVAPTAN
     Dosage: 30 MILLIGRAM, TABLET (UNCOATED)
     Route: 048
     Dates: start: 20181102
  12. TOLVAPTAN [Suspect]
     Active Substance: TOLVAPTAN
     Dosage: 60 MILLIGRAM, TABLET (UNCOATED)
     Route: 048
     Dates: start: 20181102
  13. TOLVAPTAN [Suspect]
     Active Substance: TOLVAPTAN
     Dosage: 30 MILLIGRAM, TABLET (UNCOATED)
     Route: 048
     Dates: start: 20181127
  14. TOLVAPTAN [Suspect]
     Active Substance: TOLVAPTAN
     Dosage: 90 MILLIGRAM, TABLET (UNCOATED)
     Route: 048
     Dates: start: 20181127
  15. BISACODYL [Concomitant]
     Active Substance: BISACODYL
     Indication: Product used for unknown indication
     Dosage: 1 DOSAGE FORM, QD TABLET (UNCOATED)TABLET (UNCOATED, ORAL)
     Route: 048
     Dates: start: 20190425
  16. BISOPROLOL [Concomitant]
     Active Substance: BISOPROLOL
     Indication: Hypertension
     Dosage: 2.5 MILLIGRAM, QD
     Route: 048
     Dates: start: 20171024
  17. CAPSAICIN [Concomitant]
     Active Substance: CAPSAICIN
     Indication: Pain
     Dosage: 0.075 %, QID
     Route: 061
     Dates: start: 20180919
  18. CIPROFLOXACIN [Concomitant]
     Active Substance: CIPROFLOXACIN
     Indication: Renal cyst infection
     Dosage: 500 MILLIGRAM, BID
     Route: 048
     Dates: start: 20181017, end: 20181026
  19. FENTANYL [Concomitant]
     Active Substance: FENTANYL
     Indication: Pain
     Dosage: 25 MICROGRAM, EVERY 3 DAYS
     Route: 062
     Dates: start: 20190425, end: 20190605
  20. FENTANYL [Concomitant]
     Active Substance: FENTANYL
     Dosage: 50 MICROGRAM, EVERY 3 DAY
     Route: 062
     Dates: start: 20190605, end: 20200917
  21. FENTANYL [Concomitant]
     Active Substance: FENTANYL
     Dosage: 50 MICROGRAM, EVERY OTHER DAY
     Route: 062
     Dates: start: 20200917
  22. BUTYLSCOPOLAMINE BROMIDE [Concomitant]
     Active Substance: BUTYLSCOPOLAMINE BROMIDE
     Indication: Abdominal pain
     Dosage: 20 MILLIGRAM, QDS
     Route: 048
     Dates: start: 20180604
  23. LACTULOSE [Concomitant]
     Active Substance: LACTULOSE
     Indication: Product used for unknown indication
     Dosage: 10 MILLILITER, BID
     Route: 048
     Dates: start: 20190425
  24. OXYCODONE HYDROCHLORIDE [Concomitant]
     Active Substance: OXYCODONE HYDROCHLORIDE
     Indication: Pain
     Dosage: 10 MILLIGRAM, BID (LONGTEC)
     Route: 048
     Dates: start: 20180307, end: 20181015
  25. OXYCODONE HYDROCHLORIDE [Concomitant]
     Active Substance: OXYCODONE HYDROCHLORIDE
     Dosage: 15 MILLIGRAM, BID (LONGTEC)
     Route: 048
     Dates: start: 20180919, end: 20190425
  26. OXYCODONE HYDROCHLORIDE [Concomitant]
     Active Substance: OXYCODONE HYDROCHLORIDE
     Dosage: 15 MILLIGRAM, BID (SHORTEC)
     Route: 048
     Dates: start: 20180919, end: 20190425
  27. OXYCODONE HYDROCHLORIDE [Concomitant]
     Active Substance: OXYCODONE HYDROCHLORIDE
     Dosage: 20 MILLIGRAM, BID (LONGTEC)
     Route: 048
     Dates: start: 20181016, end: 20190425
  28. PAROXETINE [Concomitant]
     Active Substance: PAROXETINE
     Indication: Depressed mood
     Dosage: 10 MILLIGRAM, QOD
     Route: 048
     Dates: start: 20170202, end: 20181227
  29. PAROXETINE [Concomitant]
     Active Substance: PAROXETINE
     Dosage: 10 MILLIGRAM, QD
     Route: 048
     Dates: start: 20190913
  30. PEPPERMINT OIL [Concomitant]
     Active Substance: PEPPERMINT OIL
     Indication: Dyspepsia
     Dosage: UNK
     Route: 065
  31. PEPPERMINT OIL [Concomitant]
     Active Substance: PEPPERMINT OIL
     Indication: Abdominal distension
     Dosage: 1 DOSAGE FORM AS NEEDED
     Route: 048
     Dates: start: 20170314
  32. PREGABALIN [Concomitant]
     Active Substance: PREGABALIN
     Indication: Pain
     Dosage: 225 MG (75/150 MG), BID
     Route: 048
     Dates: start: 20190913
  33. PREGABALIN [Concomitant]
     Active Substance: PREGABALIN
     Dosage: 50 MILLIGRAM, BID
     Route: 048
     Dates: start: 20181015, end: 20181227
  34. PREGABALIN [Concomitant]
     Active Substance: PREGABALIN
     Dosage: 75 MILLIGRAM, BID
     Route: 048
     Dates: start: 20181227, end: 20190913
  35. RAMIPRIL [Concomitant]
     Active Substance: RAMIPRIL
     Indication: Product used for unknown indication
     Dosage: 1.25 MILLIGRAM, QD
     Route: 048
     Dates: start: 20180307, end: 20190919
  36. SENOKOT [Concomitant]
     Active Substance: SENNOSIDES
     Indication: Product used for unknown indication
     Dosage: 15 MILLIGRAM, QD
     Route: 048
     Dates: start: 20190425, end: 20191024

REACTIONS (7)
  - Abdominal pain [Not Recovered/Not Resolved]
  - Nocturia [Not Recovered/Not Resolved]
  - Abdominal pain [Recovered/Resolved]
  - Dizziness [Recovering/Resolving]
  - Fatigue [Recovering/Resolving]
  - Fatigue [Recovering/Resolving]
  - Hypotension [Recovering/Resolving]

NARRATIVE: CASE EVENT DATE: 20180604
